FAERS Safety Report 7936087-9 (Version None)
Quarter: 2011Q4

REPORT INFORMATION
  Report Type: 
  Country: None (occurrence: None)
  Receive Date: 20111121
  Receipt Date: 20111109
  Transmission Date: 20120403
  Serious: Yes (Hospitalization)
  Sender: FDA-Public Use
  Company Number: USA/USA/11/0021981

PATIENT
  Age: 36 Year
  Sex: Male

DRUGS (4)
  1. FUROSEMIDE [Suspect]
     Indication: PRODUCT USED FOR UNKNOWN INDICATION
     Dosage: UNKNOWN, UNKNOWN
  2. LISINOPRIL [Suspect]
     Indication: PRODUCT USED FOR UNKNOWN INDICATION
     Dosage: UNKNOWN, UNKNOWN
  3. CARVEDILOL [Suspect]
     Indication: PRODUCT USED FOR UNKNOWN INDICATION
     Dosage: UNKNOWN, UNKNOWN
  4. INSULIN [Suspect]
     Indication: CARDIOGENIC SHOCK
     Dosage: TIME INGESTION TO HIGH DOSE INSULIN (HDI) - 3 H. HDI BOLUS - 70 IU; HDI DRIP RANGE 10-70 IU/H, MAX D

REACTIONS (4)
  - HYPOKALAEMIA [None]
  - HYPOGLYCAEMIA [None]
  - MULTIPLE DRUG OVERDOSE [None]
  - CARDIOGENIC SHOCK [None]
